FAERS Safety Report 23872272 (Version 1)
Quarter: 2024Q2

REPORT INFORMATION
  Report Type: Spontaneous
  Country: US (occurrence: US)
  Receive Date: 20240520
  Receipt Date: 20240520
  Transmission Date: 20240716
  Serious: Yes (Hospitalization, Other)
  Sender: FDA-Public Use
  Company Number: US-ORGANON-O2405USA001315

PATIENT
  Sex: Female

DRUGS (8)
  1. MAXALT [Suspect]
     Active Substance: RIZATRIPTAN BENZOATE
     Indication: Migraine
     Dosage: UNK, PRN
     Route: 048
  2. NURTEC ODT [Suspect]
     Active Substance: RIMEGEPANT SULFATE
     Indication: Migraine
     Dosage: 75 MILLIGRAM, PRN
     Route: 048
     Dates: start: 2021
  3. ASPIRIN [Suspect]
     Active Substance: ASPIRIN
     Indication: Migraine
     Dosage: 81 MILLIGRAM, QD
     Route: 048
     Dates: start: 202308
  4. BOTOX [Suspect]
     Active Substance: ONABOTULINUMTOXINA
     Indication: Migraine
     Dosage: UNK, Q3M
     Dates: start: 2018
  5. PROMETHAZINE [Suspect]
     Active Substance: PROMETHAZINE HYDROCHLORIDE
     Indication: Migraine
     Dosage: 25 MILLIGRAM, PRN
     Route: 065
  6. ACRIVASTINE [Suspect]
     Active Substance: ACRIVASTINE
     Indication: Migraine
     Dosage: 50 MILLIGRAM, PRN
     Route: 065
  7. TYLENOL [Suspect]
     Active Substance: ACETAMINOPHEN
     Indication: Migraine
     Dosage: 500 MILLIGRAM, PRN
     Route: 065
  8. IMITREX [Suspect]
     Active Substance: SUMATRIPTAN SUCCINATE
     Indication: Migraine
     Dosage: UNK, PRN
     Route: 065

REACTIONS (2)
  - Complication of pregnancy [Unknown]
  - Complication of delivery [Unknown]
